APPROVED DRUG PRODUCT: TEMODAR
Active Ingredient: TEMOZOLOMIDE
Strength: 100MG/VIAL
Dosage Form/Route: POWDER;INTRAVENOUS
Application: N022277 | Product #001
Applicant: MERCK SHARP AND DOHME CORP
Approved: Feb 27, 2009 | RLD: Yes | RS: Yes | Type: RX